FAERS Safety Report 5112535-7 (Version None)
Quarter: 2006Q3

REPORT INFORMATION
  Report Type: 
  Country: None (occurrence: None)
  Receive Date: 20060922
  Receipt Date: 20060912
  Transmission Date: 20061208
  Serious: Yes (Hospitalization, Other)
  Sender: FDA-Public Use
  Company Number: PHNR2006AU01227

PATIENT
  Sex: Male

DRUGS (1)
  1. CLOZARIL [Suspect]
     Dosage: 25 - 200MG DAILY
     Route: 048
     Dates: start: 20060816, end: 20060904

REACTIONS (4)
  - BODY TEMPERATURE INCREASED [None]
  - CARDIAC DISORDER [None]
  - INFLUENZA LIKE ILLNESS [None]
  - TROPONIN INCREASED [None]
